FAERS Safety Report 4451850-7 (Version None)
Quarter: 2004Q3

REPORT INFORMATION
  Report Type: 
  Country: None (occurrence: None)
  Receive Date: 20040915
  Receipt Date: 20040915
  Transmission Date: 20050211
  Serious: Yes (Hospitalization)
  Sender: FDA-Public Use
  Company Number: None

PATIENT
  Age: 15 Year
  Sex: Female
  Weight: 72.5755 kg

DRUGS (2)
  1. DEPO-PROVERA [Suspect]
     Dates: start: 20031101, end: 20040201
  2. DEPO-PROVERA [Suspect]
     Dates: start: 20040311, end: 20040311

REACTIONS (9)
  - ABNORMAL BEHAVIOUR [None]
  - AGGRESSION [None]
  - ANGER [None]
  - DEPRESSION [None]
  - DISTURBANCE IN ATTENTION [None]
  - MOOD SWINGS [None]
  - OVERDOSE [None]
  - PSYCHIATRIC SYMPTOM [None]
  - SUICIDAL IDEATION [None]
